FAERS Safety Report 7308988-6 (Version None)
Quarter: 2011Q1

REPORT INFORMATION
  Report Type: 
  Country: None (occurrence: None)
  Receive Date: 20110223
  Receipt Date: 20110216
  Transmission Date: 20110831
  Serious: Yes (Other)
  Sender: FDA-Public Use
  Company Number: CHPA2011US02946

PATIENT
  Sex: Female

DRUGS (1)
  1. EX-LAX REG STR LAX PILLS SENNA [Suspect]
     Indication: CONSTIPATION
     Dosage: UNK , UNK
     Route: 048

REACTIONS (5)
  - SYNCOPE [None]
  - MALAISE [None]
  - CONDITION AGGRAVATED [None]
  - PYREXIA [None]
  - DRUG INEFFECTIVE [None]
